FAERS Safety Report 19205990 (Version 1)
Quarter: 2021Q2

REPORT INFORMATION
  Report Type: Spontaneous
  Country: DE (occurrence: DE)
  Receive Date: 20210503
  Receipt Date: 20210503
  Transmission Date: 20210717
  Serious: Yes (Hospitalization, Other)
  Sender: FDA-Public Use
  Company Number: DE-AUROBINDO-AUR-APL-2021-017611

PATIENT
  Age: 80 Year
  Sex: Female

DRUGS (13)
  1. METOPROLOL. [Concomitant]
     Active Substance: METOPROLOL
     Indication: PRODUCT USED FOR UNKNOWN INDICATION
     Dosage: 47.5 MILLIGRAM (1?0?1?0,RETARD TABLETS)
     Route: 065
  2. ALENDRONIC ACID [Concomitant]
     Active Substance: ALENDRONIC ACID
     Indication: PRODUCT USED FOR UNKNOWN INDICATION
     Dosage: 70 MILLIGRAM (WEEK, 1X FRIDAYS, TABLETS)
     Route: 065
  3. RIVAROXABAN FILM COATED TABLET [Suspect]
     Active Substance: RIVAROXABAN
     Indication: PRODUCT USED FOR UNKNOWN INDICATION
     Dosage: 20 MILLIGRAM (1?0?0?0)
     Route: 065
  4. PANTOPRAZOLE [Concomitant]
     Active Substance: PANTOPRAZOLE
     Indication: PRODUCT USED FOR UNKNOWN INDICATION
     Dosage: 40 MILLIGRAM (1?0?0?0)
     Route: 065
  5. COTRIM [Concomitant]
     Active Substance: SULFAMETHOXAZOLE\TRIMETHOPRIM
     Indication: PRODUCT USED FOR UNKNOWN INDICATION
     Dosage: 800|160 MG/MO/MI/SA, 1X,
     Route: 065
  6. METAMIZOL [Concomitant]
     Active Substance: METAMIZOLE SODIUM
     Indication: PRODUCT USED FOR UNKNOWN INDICATION
     Dosage: 500 MILLIGRAM (1?1?1?0)
     Route: 065
  7. TORASEMID [Suspect]
     Active Substance: TORSEMIDE
     Indication: PRODUCT USED FOR UNKNOWN INDICATION
     Dosage: 20 MILLIGRAM (1?0?0?0)
     Route: 065
  8. FERROUS SULFATE;FOLIC ACID [Concomitant]
     Active Substance: FERROUS SULFATE\FOLIC ACID
     Indication: PRODUCT USED FOR UNKNOWN INDICATION
     Dosage: 100 MILLIGRAM (0?0?1?0)
     Route: 065
  9. PREDNISOLON [Suspect]
     Active Substance: PREDNISOLONE
     Indication: PRODUCT USED FOR UNKNOWN INDICATION
     Dosage: 20 MILLIGRAM (1?0?0?0)
     Route: 065
  10. AMLODIPIN [Concomitant]
     Active Substance: AMLODIPINE BESYLATE
     Indication: PRODUCT USED FOR UNKNOWN INDICATION
     Dosage: 5 MILLIGRAM (0?0?1?0)
     Route: 065
  11. HYDROCHLOROTHIAZIDE  TABLETS [Suspect]
     Active Substance: HYDROCHLOROTHIAZIDE
     Indication: PRODUCT USED FOR UNKNOWN INDICATION
     Dosage: 12.5 MILLIGRAM (1?0?0?0)
     Route: 065
  12. COLECALCIFEROL [Concomitant]
     Active Substance: CHOLECALCIFEROL
     Indication: PRODUCT USED FOR UNKNOWN INDICATION
     Dosage: 20000 INTERNATIONAL UNIT (WEEK, 1X FRIDAYS, CAPSULES)
     Route: 065
  13. SIMVASTATIN. [Concomitant]
     Active Substance: SIMVASTATIN
     Indication: PRODUCT USED FOR UNKNOWN INDICATION
     Dosage: 20 MILLIGRAM  (0?0?1?0)
     Route: 065

REACTIONS (9)
  - Asthenia [Unknown]
  - Haematemesis [Unknown]
  - Haematochezia [Unknown]
  - Product monitoring error [Unknown]
  - Electrolyte imbalance [Unknown]
  - General physical health deterioration [Unknown]
  - Dyspnoea [Unknown]
  - Glycosylated haemoglobin increased [Unknown]
  - Hyperglycaemia [Unknown]
